FAERS Safety Report 9071629 (Version 1)
Quarter: 2013Q1

REPORT INFORMATION
  Report Type: Report from Study
  Country: CN (occurrence: CN)
  Receive Date: 20130129
  Receipt Date: 20130129
  Transmission Date: 20140127
  Serious: Yes (Hospitalization)
  Sender: FDA-Public Use
  Company Number: CN-US-EMD SERONO, INC.-7187531

PATIENT
  Sex: Female
  Weight: 53 kg

DRUGS (3)
  1. GONAL-F [Suspect]
     Indication: IN VITRO FERTILISATION
     Route: 058
     Dates: end: 20121107
  2. HCG [Suspect]
     Indication: OVULATION INDUCTION
     Route: 030
     Dates: start: 20120820, end: 20120820
  3. DECAPEPTYL [Concomitant]
     Indication: ADJUVANT THERAPY
     Route: 058
     Dates: start: 20120724, end: 20120820

REACTIONS (1)
  - Ovarian hyperstimulation syndrome [Recovered/Resolved]
